FAERS Safety Report 17264122 (Version 1)
Quarter: 2020Q1

REPORT INFORMATION
  Report Type: Spontaneous
  Country: US (occurrence: US)
  Receive Date: 20200113
  Receipt Date: 20200113
  Transmission Date: 20200409
  Serious: Yes (Life-Threatening, Other)
  Sender: FDA-Public Use
  Company Number: US-AMGEN-USASP2020002675

PATIENT
  Age: 23 Year
  Sex: Male

DRUGS (8)
  1. INOTUZUMAB OZOGAMICIN [Concomitant]
     Active Substance: INOTUZUMAB OZOGAMICIN
  2. ZALMOXIS [Concomitant]
  3. IFOSFAMIDE. [Concomitant]
     Active Substance: IFOSFAMIDE
  4. BLINATUMOMAB [Suspect]
     Active Substance: BLINATUMOMAB
     Indication: B PRECURSOR TYPE ACUTE LEUKAEMIA
     Dosage: UNK
     Route: 065
  5. ETOPOSIDE. [Concomitant]
     Active Substance: ETOPOSIDE
  6. TISAGENLECLEUCEL-T [Concomitant]
     Active Substance: TISAGENLECLEUCEL
  7. FLUDARABINE [Concomitant]
     Active Substance: FLUDARABINE PHOSPHATE
  8. CYTARABINE. [Concomitant]
     Active Substance: CYTARABINE

REACTIONS (6)
  - Mucormycosis [Unknown]
  - Precursor B-lymphoblastic lymphoma recurrent [Recovered/Resolved]
  - Lung consolidation [Unknown]
  - Neutropenia [Unknown]
  - Cytokine release syndrome [Unknown]
  - Respiratory failure [Unknown]
